FAERS Safety Report 25797569 (Version 1)
Quarter: 2025Q3

REPORT INFORMATION
  Report Type: Spontaneous
  Country: CN (occurrence: CN)
  Receive Date: 20250912
  Receipt Date: 20250912
  Transmission Date: 20251021
  Serious: Yes (Other)
  Sender: ELI LILLY AND COMPANY
  Company Number: CN-Merck Healthcare KGaA-2025044836

PATIENT
  Age: 65 Year
  Sex: Male
  Weight: 50 kg

DRUGS (2)
  1. ERBITUX [Suspect]
     Active Substance: CETUXIMAB
     Indication: Tongue neoplasm malignant stage unspecified
     Route: 041
     Dates: start: 20250726, end: 20250726
  2. SODIUM CHLORIDE [Concomitant]
     Active Substance: SODIUM CHLORIDE
     Indication: Medication dilution
     Dosage: 1 DOSAGE FORM, DAILY
     Route: 041
     Dates: start: 20250726, end: 20250726

REACTIONS (3)
  - Urticaria [Recovering/Resolving]
  - Bacterial infection [Recovering/Resolving]
  - Pruritus [Recovering/Resolving]

NARRATIVE: CASE EVENT DATE: 20250801
